FAERS Safety Report 9124824 (Version 1)
Quarter: 2013Q1

REPORT INFORMATION
  Report Type: Report from Study
  Country: JP (occurrence: JP)
  Receive Date: 20130227
  Receipt Date: 20130227
  Transmission Date: 20140127
  Serious: Yes (Hospitalization, Other)
  Sender: FDA-Public Use
  Company Number: JP-B.I. PHARMACEUTICALS,INC./RIDGEFIELD-2013-BI-05104GD

PATIENT
  Age: 67 Year
  Sex: Male

DRUGS (5)
  1. PRADAXA [Suspect]
     Indication: THROMBOSIS PROPHYLAXIS
     Dosage: 220 MG
     Route: 048
     Dates: start: 20110720, end: 20120608
  2. BUFFERIN [Concomitant]
     Dosage: 81 MG
     Route: 065
     Dates: start: 19960514
  3. MAINTATE [Concomitant]
     Dosage: 2.5 MG
     Route: 065
     Dates: start: 19960514
  4. CRESTOR [Concomitant]
     Dosage: 2.5 MG
     Route: 065
     Dates: start: 20070425
  5. NU-LOTAN [Concomitant]
     Dosage: 25 MG
     Route: 065
     Dates: start: 20101110

REACTIONS (5)
  - Pneumonia [Unknown]
  - Pneumonia [Recovered/Resolved]
  - Retinal haemorrhage [Not Recovered/Not Resolved]
  - Abdominal discomfort [Not Recovered/Not Resolved]
  - Influenza [Unknown]
